FAERS Safety Report 5338152-1 (Version None)
Quarter: 2007Q2

REPORT INFORMATION
  Report Type: 
  Country: None (occurrence: None)
  Receive Date: 20070530
  Receipt Date: 20070521
  Transmission Date: 20071010
  Serious: No
  Sender: FDA-Public Use
  Company Number: PHNR2007AU01070

PATIENT
  Sex: Female

DRUGS (5)
  1. CLOZARIL [Suspect]
     Indication: SCHIZOPHRENIA
     Dosage: 12-425 MG DAILY
     Route: 048
     Dates: start: 19960429
  2. TRITACE [Concomitant]
     Dosage: 2.5 MG, QD
     Route: 048
  3. LIPITOR [Concomitant]
     Dosage: 40 MG, QHS
     Route: 048
  4. FERROGRADUMET [Concomitant]
     Dosage: 1 TABLET, QD
     Route: 048
     Dates: start: 20060101
  5. OMEPRAZOLE [Concomitant]
     Dosage: 20 MG, BID
     Route: 048
     Dates: start: 20010101

REACTIONS (2)
  - DILATATION ATRIAL [None]
  - ECHOGRAPHY ABNORMAL [None]
